FAERS Safety Report 22173942 (Version 3)
Quarter: 2024Q1

REPORT INFORMATION
  Report Type: Other
  Country: DE (occurrence: None)
  Receive Date: 20230404
  Receipt Date: 20240311
  Transmission Date: 20240410
  Serious: No
  Sender: FDA-Public Use
  Company Number: DE-ROCHE-3324299

PATIENT
  Age: 44 Year
  Sex: Female
  Weight: 67 kg

DRUGS (3)
  1. OCREVUS [Suspect]
     Active Substance: OCRELIZUMAB
     Indication: Relapsing multiple sclerosis
     Route: 042
     Dates: start: 20220222, end: 20220308
  2. OCREVUS [Suspect]
     Active Substance: OCRELIZUMAB
     Route: 042
     Dates: start: 20220929
  3. FERROUS GLUCONATE [Concomitant]
     Active Substance: FERROUS GLUCONATE
     Route: 048
     Dates: start: 202212

REACTIONS (4)
  - Nasopharyngitis [Recovered/Resolved]
  - Coronavirus infection [Recovered/Resolved]
  - Pain in extremity [Recovered/Resolved]
  - Urinary tract inflammation [Recovered/Resolved]

NARRATIVE: CASE EVENT DATE: 20221010
